FAERS Safety Report 6111291-3 (Version None)
Quarter: 2009Q1

REPORT INFORMATION
  Report Type: 
  Country: None (occurrence: None)
  Receive Date: 20090310
  Receipt Date: 20090310
  Transmission Date: 20090719
  Serious: Yes (Other)
  Sender: FDA-Public Use
  Company Number: None

PATIENT
  Age: 62 Year
  Sex: Female
  Weight: 68.0396 kg

DRUGS (5)
  1. LABETALOL HCL [Suspect]
     Indication: HYPERTENSION
     Dosage: 100 MG VARIED 1 TO 3/DAY PO
     Route: 048
     Dates: start: 20090219, end: 20090307
  2. REGULAR INSULIN [Concomitant]
  3. INSULIN H [Concomitant]
  4. LISINOPRIL [Concomitant]
  5. HYDROCHLOROTHIAZIDE [Concomitant]

REACTIONS (6)
  - ASTHENIA [None]
  - BLOOD PRESSURE DECREASED [None]
  - COGNITIVE DISORDER [None]
  - DISTURBANCE IN ATTENTION [None]
  - IMPAIRED WORK ABILITY [None]
  - NAUSEA [None]
